FAERS Safety Report 4674485-X (Version None)
Quarter: 2005Q2

REPORT INFORMATION
  Report Type: 
  Country: None (occurrence: None)
  Receive Date: 20050526
  Receipt Date: 20050516
  Transmission Date: 20051028
  Serious: Yes (Other)
  Sender: FDA-Public Use
  Company Number: US-JNJFOC-20050504318

PATIENT
  Age: 24 Year
  Sex: Female

DRUGS (2)
  1. IMODIUM A-D [Suspect]
  2. IMODIUM A-D [Suspect]
     Dosage: 2-4 MG, PRN

REACTIONS (1)
  - HALLUCINATION [None]
